FAERS Safety Report 18720981 (Version 3)
Quarter: 2021Q1

REPORT INFORMATION
  Report Type: Spontaneous
  Country: GB (occurrence: GB)
  Receive Date: 20210108
  Receipt Date: 20210120
  Transmission Date: 20210419
  Serious: Yes (Life-Threatening, Hospitalization, Other)
  Sender: FDA-Public Use
  Company Number: GB-PURDUE-USA-2020-0195884

PATIENT
  Age: 53 Year
  Sex: Male

DRUGS (15)
  1. OXYCODONE HYDROCHLORIDE. [Suspect]
     Active Substance: OXYCODONE HYDROCHLORIDE
     Dosage: UNK
     Route: 048
  2. TRAMADOL HYDROCHLORIDE. [Suspect]
     Active Substance: TRAMADOL HYDROCHLORIDE
     Indication: SUICIDE ATTEMPT
     Dosage: UNK
     Route: 065
  3. MORPHINE SULFATE. [Suspect]
     Active Substance: MORPHINE SULFATE
     Dosage: UNK
     Route: 048
  4. RINGERS LACTATE [Suspect]
     Active Substance: CALCIUM CHLORIDE\POTASSIUM CHLORIDE\SODIUM LACTATE
     Indication: HYPOTENSION
     Dosage: 500 ML, UNK
     Route: 040
  5. NOREPINEPHRINE. [Concomitant]
     Active Substance: NOREPINEPHRINE
     Dosage: 5MG INJECTED INTO THE REMAINING 500ML OF CRYSTALLOID IN THE BAG AND MARKED `+NOR 5 MG/500ML
  6. TRAMADOL HYDROCHLORIDE. [Suspect]
     Active Substance: TRAMADOL HYDROCHLORIDE
     Dosage: UNK
     Route: 048
  7. NOREPINEPHRINE. [Concomitant]
     Active Substance: NOREPINEPHRINE
     Dosage: 0.02 MICROG/KG/MIN THOROUGH SYRINGE DRIVER
  8. OXYCODONE HYDROCHLORIDE. [Suspect]
     Active Substance: OXYCODONE HYDROCHLORIDE
     Dosage: UNK
     Route: 048
  9. MORPHINE SULFATE. [Suspect]
     Active Substance: MORPHINE SULFATE
     Indication: SUICIDE ATTEMPT
     Dosage: UNK
     Route: 048
  10. TRAMADOL HYDROCHLORIDE. [Suspect]
     Active Substance: TRAMADOL HYDROCHLORIDE
     Dosage: UNK
     Route: 048
  11. MORPHINE SULFATE. [Suspect]
     Active Substance: MORPHINE SULFATE
     Dosage: UNK
     Route: 048
  12. OXYCODONE HYDROCHLORIDE. [Suspect]
     Active Substance: OXYCODONE HYDROCHLORIDE
     Indication: SUICIDE ATTEMPT
     Dosage: UNK
     Route: 065
  13. GLYCERYL TRINITRATE [Suspect]
     Active Substance: NITROGLYCERIN
     Indication: CARDIAC ARREST
     Dosage: BOLUSES OF 0.5 MG UP TO 2 MG
     Route: 042
  14. NOREPINEPHRINE. [Concomitant]
     Active Substance: NOREPINEPHRINE
     Dosage: 5MG INJECTED INTO THE REMAINING 500ML OF CRYSTALLOID IN THE BAG AND MARKED `+NOR 5 MG/500ML
  15. NOREPINEPHRINE. [Concomitant]
     Active Substance: NOREPINEPHRINE
     Dosage: 0.02 MICROG/KG/MIN THOROUGH SYRINGE DRIVER

REACTIONS (8)
  - Drug ineffective [Recovered/Resolved]
  - Respiratory depression [Recovered/Resolved]
  - Obstructive airways disorder [Recovered/Resolved]
  - Depressed level of consciousness [Recovered/Resolved]
  - Respiratory rate decreased [Recovered/Resolved]
  - Hypotension [Recovered/Resolved]
  - Intentional overdose [Recovered/Resolved]
  - Suicide attempt [Recovered/Resolved]
